FAERS Safety Report 16554825 (Version 2)
Quarter: 2019Q3

REPORT INFORMATION
  Report Type: Report from Study
  Country: FR (occurrence: FR)
  Receive Date: 20190710
  Receipt Date: 20190711
  Transmission Date: 20191004
  Serious: Yes (Hospitalization)
  Sender: FDA-Public Use
  Company Number: FR-PFIZER INC-2019270521

PATIENT
  Age: 50 Year
  Sex: Female
  Weight: 60 kg

DRUGS (13)
  1. IRINOTECAN HCL [Suspect]
     Active Substance: IRINOTECAN HYDROCHLORIDE
     Indication: COLORECTAL CANCER METASTATIC
     Dosage: 300 MG, CYCLIC
     Route: 042
     Dates: start: 20160407, end: 20160407
  2. FLUOROURACIL. [Suspect]
     Active Substance: FLUOROURACIL
     Indication: COLORECTAL CANCER METASTATIC
     Dosage: 3950 MG, CYCLIC
     Route: 042
     Dates: start: 20160121, end: 20160121
  3. FLUOROURACIL. [Suspect]
     Active Substance: FLUOROURACIL
     Dosage: 650 MG, CYCLIC
     Route: 040
     Dates: start: 20160407, end: 20160407
  4. AFLIBERCEPT [Suspect]
     Active Substance: AFLIBERCEPT
     Indication: COLORECTAL CANCER METASTATIC
     Dosage: 248 MG, CYCLIC
     Route: 042
     Dates: start: 20160407, end: 20160407
  5. AFLIBERCEPT [Suspect]
     Active Substance: AFLIBERCEPT
     Dosage: 248 MG, CYCLIC
     Route: 042
     Dates: start: 20160121, end: 20160121
  6. TEMERIT [Concomitant]
     Active Substance: NEBIVOLOL
     Indication: HYPERTENSION
     Dosage: 5 MG, 1X/DAY
     Route: 065
     Dates: start: 20160204
  7. FLUOROURACIL. [Suspect]
     Active Substance: FLUOROURACIL
     Dosage: 3950 MG, CYCLIC
     Route: 042
     Dates: start: 20160407, end: 20160407
  8. FLUOROURACIL. [Suspect]
     Active Substance: FLUOROURACIL
     Dosage: 650 MG, CYCLIC
     Route: 040
     Dates: start: 20160121, end: 20160121
  9. FLUOROURACIL. [Suspect]
     Active Substance: FLUOROURACIL
     Dosage: 650 MG, CYCLIC
     Route: 040
     Dates: start: 20160324, end: 20160324
  10. IRINOTECAN HCL [Suspect]
     Active Substance: IRINOTECAN HYDROCHLORIDE
     Dosage: 300 MG, CYCLIC
     Route: 042
     Dates: start: 20160121, end: 20160121
  11. CALCIUM FOLINATE [Suspect]
     Active Substance: LEUCOVORIN CALCIUM
     Indication: COLORECTAL CANCER METASTATIC
     Dosage: 328 MG, CYCLIC
     Route: 042
     Dates: start: 20160121, end: 20160121
  12. PRETERAX [INDAPAMIDE;PERINDOPRIL ARGININE] [Concomitant]
     Indication: HYPERTENSION
     Dosage: 2.5 MG, 1X/DAY
     Route: 065
     Dates: start: 20160301
  13. CALCIUM FOLINATE [Suspect]
     Active Substance: LEUCOVORIN CALCIUM
     Dosage: 328 MG, CYCLIC
     Route: 042
     Dates: start: 20160407, end: 20160407

REACTIONS (3)
  - Embolism [Recovered/Resolved]
  - Phlebitis [Unknown]
  - Pulmonary embolism [Unknown]

NARRATIVE: CASE EVENT DATE: 20160418
